FAERS Safety Report 7907488-X (Version None)
Quarter: 2011Q4

REPORT INFORMATION
  Report Type: 
  Country: None (occurrence: None)
  Receive Date: 20111109
  Receipt Date: 20111109
  Transmission Date: 20120403
  Serious: Yes (Hospitalization)
  Sender: FDA-Public Use
  Company Number: None

PATIENT
  Sex: Female
  Weight: 67 kg

DRUGS (2)
  1. CARBOPLATIN [Suspect]
     Dosage: 731 MG
     Dates: end: 20110928
  2. ETOPOSIDE [Suspect]
     Dosage: 540 MG
     Dates: end: 20110930

REACTIONS (4)
  - ANAEMIA [None]
  - FEBRILE NEUTROPENIA [None]
  - FATIGUE [None]
  - PLATELET COUNT DECREASED [None]
